FAERS Safety Report 26034696 (Version 2)
Quarter: 2025Q4

REPORT INFORMATION
  Report Type: Report from Study
  Country: US (occurrence: US)
  Receive Date: 20251112
  Receipt Date: 20251205
  Transmission Date: 20260118
  Serious: No
  Sender: MERCK SHARP & DOHME LLC
  Company Number: US-009507513-2348346

PATIENT
  Sex: Female
  Weight: 91.172 kg

DRUGS (25)
  1. WINREVAIR [Suspect]
     Active Substance: SOTATERCEPT-CSRK
     Indication: Pulmonary arterial hypertension
     Route: 058
     Dates: start: 20251105
  2. WINREVAIR [Suspect]
     Active Substance: SOTATERCEPT-CSRK
  3. WINREVAIR [Suspect]
     Active Substance: SOTATERCEPT-CSRK
  4. WINREVAIR [Suspect]
     Active Substance: SOTATERCEPT-CSRK
  5. TRULICITY [Concomitant]
     Active Substance: DULAGLUTIDE
  6. OMEPRAZOLE [Concomitant]
     Active Substance: OMEPRAZOLE
  7. IMODIUM A-D [Concomitant]
     Active Substance: LOPERAMIDE HYDROCHLORIDE
  8. SALONPAS PAIN RELIEF [Concomitant]
     Active Substance: MENTHOL\METHYL SALICYLATE
  9. BUMETANIDE [Concomitant]
     Active Substance: BUMETANIDE
  10. ALLOPURINOL [Concomitant]
     Active Substance: ALLOPURINOL
  11. APPLE CIDER VINEGAR [Concomitant]
     Active Substance: APPLE CIDER VINEGAR
  12. METOLAZONE [Concomitant]
     Active Substance: METOLAZONE
  13. GABAPENTIN [Concomitant]
     Active Substance: GABAPENTIN
  14. LANTUS SOLOSTAR [Concomitant]
     Active Substance: INSULIN GLARGINE
  15. MULTIVITAMINS TABLET [Concomitant]
  16. ADEMPAS [Concomitant]
     Active Substance: RIOCIGUAT
  17. OXYGEN [Concomitant]
     Active Substance: OXYGEN
  18. SPIRONOLACTONE [Concomitant]
     Active Substance: SPIRONOLACTONE
  19. SIMVASTATIN [Concomitant]
     Active Substance: SIMVASTATIN
  20. VITAMIN D3 [Concomitant]
     Active Substance: CHOLECALCIFEROL
  21. HYDROXYZINE HYDROCHLORIDE [Concomitant]
     Active Substance: HYDROXYZINE HYDROCHLORIDE
  22. TYLENOL [Concomitant]
     Active Substance: ACETAMINOPHEN
  23. METAMUCIL [Concomitant]
     Active Substance: PLANTAGO SEED
  24. ROPINIROLE HYDROCHLORIDE [Concomitant]
     Active Substance: ROPINIROLE HYDROCHLORIDE
  25. ASPIRIN [Concomitant]
     Active Substance: ASPIRIN

REACTIONS (6)
  - Bronchitis [Unknown]
  - Syringe issue [Unknown]
  - Device difficult to use [Unknown]
  - Device issue [Unknown]
  - Product dose omission issue [Unknown]
  - Device leakage [Unknown]

NARRATIVE: CASE EVENT DATE: 20250101
